FAERS Safety Report 17710649 (Version 1)
Quarter: 2020Q2

REPORT INFORMATION
  Report Type: Report from Study
  Country: US (occurrence: US)
  Receive Date: 20200427
  Receipt Date: 20200427
  Transmission Date: 20200714
  Serious: Yes (Hospitalization)
  Sender: FDA-Public Use
  Company Number: US-GLAXOSMITHKLINE-US2020GSK070577

PATIENT
  Sex: Female

DRUGS (1)
  1. ROLAPITANT HYDROCHLORIDE [Suspect]
     Active Substance: ROLAPITANT
     Indication: OVARIAN CANCER
     Dosage: 2 DF, Z (1-2 HOURS)
     Route: 048

REACTIONS (4)
  - Constipation [Unknown]
  - Vomiting [Unknown]
  - Nausea [Unknown]
  - Inappropriate schedule of product administration [Unknown]
